FAERS Safety Report 7906787-5 (Version None)
Quarter: 2011Q4

REPORT INFORMATION
  Report Type: 
  Country: None (occurrence: None)
  Receive Date: 20111110
  Receipt Date: 20111101
  Transmission Date: 20120403
  Serious: Yes (Hospitalization)
  Sender: FDA-Public Use
  Company Number: IL-NOVOPROD-338707

PATIENT

DRUGS (8)
  1. LIPITOR [Concomitant]
     Dosage: 40 MG, QD
  2. VICTOZA [Suspect]
     Indication: TYPE 2 DIABETES MELLITUS
     Dosage: 0.6 MG, QD
     Route: 065
  3. GLUCOPHAGE [Concomitant]
  4. NORMITEN [Concomitant]
     Dosage: 50 MG, QD
  5. VICTOZA [Suspect]
     Dosage: 0.6 MG, QD
     Route: 065
  6. VICTOZA [Suspect]
     Dosage: 0.6 MG, QD
     Route: 065
  7. GLUCOMIN [Concomitant]
     Dosage: 3X/D
  8. ASPIRIN [Concomitant]
     Dosage: 1X/D

REACTIONS (6)
  - BLOOD PRESSURE INCREASED [None]
  - NAUSEA [None]
  - VOMITING [None]
  - CONSTIPATION [None]
  - PALPITATIONS [None]
  - DYSPNOEA [None]
